FAERS Safety Report 8835507 (Version 2)
Quarter: 2012Q4

REPORT INFORMATION
  Report Type: 
  Country: DE (occurrence: DE)
  Receive Date: 20121011
  Receipt Date: 20121124
  Transmission Date: 20130627
  Serious: Yes (Hospitalization)
  Sender: FDA-Public Use
  Company Number: PHHY2012DE089183

PATIENT
  Age: 74 Year
  Sex: Female
  Weight: 150 kg

DRUGS (2)
  1. TASIGNA [Suspect]
     Indication: CHRONIC MYELOID LEUKAEMIA
     Dosage: 600 mg, per day
     Route: 048
     Dates: start: 20120906
  2. CODIOVAN [Concomitant]
     Indication: HYPERTENSION
     Dosage: 1 DF, per day

REACTIONS (4)
  - Abasia [Not Recovered/Not Resolved]
  - Groin pain [Not Recovered/Not Resolved]
  - Pain [Not Recovered/Not Resolved]
  - Urinary tract infection [Recovered/Resolved]
